FAERS Safety Report 8578720-7 (Version None)
Quarter: 2012Q3

REPORT INFORMATION
  Report Type: 
  Country: None (occurrence: None)
  Receive Date: 20120808
  Receipt Date: 20120803
  Transmission Date: 20120928
  Serious: No
  Sender: FDA-Public Use
  Company Number: US-PFIZER INC-K201100878

PATIENT
  Age: 84 Year
  Sex: Female
  Weight: 47.166 kg

DRUGS (2)
  1. FLECTOR [Suspect]
     Indication: PAIN
     Dosage: UNK, AS NEEDED
     Route: 061
     Dates: start: 20111201, end: 20120401
  2. FLECTOR [Suspect]
     Indication: PAIN IN EXTREMITY
     Dosage: 1.3 %, UNK
     Route: 061
     Dates: start: 20100101, end: 20110101

REACTIONS (9)
  - RASH [None]
  - HYPOAESTHESIA EYE [None]
  - MALAISE [None]
  - IMPLANT SITE IRRITATION [None]
  - BODY HEIGHT DECREASED [None]
  - DYSPNOEA [None]
  - SINUS DISORDER [None]
  - PRESYNCOPE [None]
  - MUSCULOSKELETAL DISORDER [None]
